FAERS Safety Report 18557470 (Version 1)
Quarter: 2020Q4

REPORT INFORMATION
  Report Type: Other
  Country: US (occurrence: US)
  Receive Date: 20201130
  Receipt Date: 20201130
  Transmission Date: 20210114
  Serious: Yes (Other)
  Sender: FDA-Public Use
  Company Number: US-ROCHE-2718201

PATIENT

DRUGS (2)
  1. BEVACIZUMAB. [Suspect]
     Active Substance: BEVACIZUMAB
     Indication: GLIOMA
     Route: 042
  2. PEMBROLIZUMAB. [Suspect]
     Active Substance: PEMBROLIZUMAB
     Indication: GLIOMA
     Dosage: CYCLE 1 DAY 1
     Route: 065

REACTIONS (5)
  - Confusional state [Unknown]
  - Embolism [Unknown]
  - Hypertension [Unknown]
  - Pancreatitis [Unknown]
  - Mental disorder [Unknown]
